FAERS Safety Report 9890920 (Version 1)
Quarter: 2014Q1

REPORT INFORMATION
  Report Type: Spontaneous
  Country: US (occurrence: US)
  Receive Date: 20140212
  Receipt Date: 20140212
  Transmission Date: 20141002
  Serious: No
  Sender: FDA-Public Use
  Company Number: US-009507513-1402USA000333

PATIENT
  Sex: Female

DRUGS (1)
  1. ISENTRESS CHEWABLE TABLETS [Suspect]
     Dosage: UNK
     Route: 048
     Dates: start: 201401

REACTIONS (2)
  - Dysgeusia [Unknown]
  - Product taste abnormal [Unknown]
